FAERS Safety Report 8232841-7 (Version None)
Quarter: 2012Q1

REPORT INFORMATION
  Report Type: 
  Country: None (occurrence: None)
  Receive Date: 20120323
  Receipt Date: 20120314
  Transmission Date: 20120608
  Serious: Yes (Other)
  Sender: FDA-Public Use
  Company Number: IE-ASTRAZENECA-2012SE15539

PATIENT
  Age: 21863 Day
  Sex: Male
  Weight: 86 kg

DRUGS (2)
  1. SYMBICORT [Suspect]
     Indication: ASTHMA
     Dosage: 400/12 BID
     Route: 055
     Dates: start: 20120223, end: 20120229
  2. SYMBICORT [Suspect]
     Indication: COUGH
     Dosage: 400/12 BID
     Route: 055
     Dates: start: 20120223, end: 20120229

REACTIONS (1)
  - DYSPNOEA [None]
